FAERS Safety Report 7675946-1 (Version None)
Quarter: 2011Q3

REPORT INFORMATION
  Report Type: 
  Country: None (occurrence: None)
  Receive Date: 20110811
  Receipt Date: 20110803
  Transmission Date: 20111222
  Serious: Yes (Other)
  Sender: FDA-Public Use
  Company Number: 2006BI003730

PATIENT
  Age: 48 Year
  Sex: Female
  Weight: 49 kg

DRUGS (5)
  1. FEMARA [Concomitant]
     Indication: BREAST CANCER
     Route: 048
     Dates: start: 20050101
  2. TAMOXIFEN CITRATE [Concomitant]
     Indication: BREAST CANCER
     Dates: start: 20020301, end: 20050101
  3. AVONEX [Suspect]
     Indication: MULTIPLE SCLEROSIS
     Route: 030
     Dates: start: 20050504, end: 20060328
  4. AVONEX [Suspect]
     Route: 030
     Dates: start: 20080901
  5. SYNTHROID [Concomitant]
     Indication: THYROIDECTOMY
     Route: 048
     Dates: start: 19900101

REACTIONS (3)
  - PALPITATIONS [None]
  - BLADDER DISORDER [None]
  - BREAST CANCER [None]
